FAERS Safety Report 11339717 (Version 1)
Quarter: 2015Q3

REPORT INFORMATION
  Report Type: Spontaneous
  Country: US (occurrence: None)
  Receive Date: 20150804
  Receipt Date: 20150804
  Transmission Date: 20151125
  Serious: No
  Sender: FDA-Public Use
  Company Number: None

PATIENT
  Age: 60 Year
  Sex: Male
  Weight: 79.38 kg

DRUGS (1)
  1. ARMOUR THYROID [Suspect]
     Active Substance: THYROID, PORCINE\THYROID, UNSPECIFIED
     Indication: HYPOTHYROIDISM
     Dosage: TAKEN BY MOUTH
     Dates: start: 20150709, end: 20150801

REACTIONS (3)
  - Product odour abnormal [None]
  - Product substitution issue [None]
  - Product formulation issue [None]

NARRATIVE: CASE EVENT DATE: 20150802
